APPROVED DRUG PRODUCT: FLUDEOXYGLUCOSE F18
Active Ingredient: FLUDEOXYGLUCOSE F-18
Strength: 20-200mCi/ML
Dosage Form/Route: INJECTABLE;INTRAVENOUS
Application: A079086 | Product #001 | TE Code: AP
Applicant: PETNET SOLUTIONS INC
Approved: Feb 25, 2011 | RLD: No | RS: Yes | Type: RX